FAERS Safety Report 11664479 (Version 1)
Quarter: 2015Q4

REPORT INFORMATION
  Report Type: Report from Study
  Country: US (occurrence: US)
  Receive Date: 20151027
  Receipt Date: 20151027
  Transmission Date: 20160304
  Serious: No
  Sender: FDA-Public Use
  Company Number: PHEH2015US006389

PATIENT
  Sex: Male
  Weight: 93.1 kg

DRUGS (1)
  1. EXJADE [Suspect]
     Active Substance: DEFERASIROX
     Indication: POLYGLANDULAR DISORDER
     Dosage: 1000 MG, QD
     Route: 048

REACTIONS (1)
  - Rash [Unknown]
